FAERS Safety Report 6193317-4 (Version None)
Quarter: 2009Q2

REPORT INFORMATION
  Report Type: 
  Country: None (occurrence: None)
  Receive Date: 20090513
  Receipt Date: 20090513
  Transmission Date: 20091009
  Serious: Yes (Other)
  Sender: FDA-Public Use
  Company Number: None

PATIENT
  Sex: Female
  Weight: 97.0698 kg

DRUGS (12)
  1. OMALIZUMAB [Suspect]
     Indication: ASTHMA
     Dosage: 300MG EVERY 2 WEEKS SQ
     Route: 058
     Dates: start: 20060327, end: 20090318
  2. SINGULAIR [Concomitant]
  3. FEXOFENADINE [Concomitant]
  4. NASONEX [Concomitant]
  5. ALBUTEROL [Concomitant]
  6. LISINOPRIL [Concomitant]
  7. ORAL CONTRACEPTIVE [Concomitant]
  8. MULTI-VITAMIN [Concomitant]
  9. ASCORBIC ACID [Concomitant]
  10. INFLUENZA VACCINATION [Concomitant]
  11. PREDNISONE [Concomitant]
  12. ADVAIR HFA [Concomitant]

REACTIONS (5)
  - CERVICITIS [None]
  - ENDOMETRIAL DISORDER [None]
  - OVARIAN FIBROSIS [None]
  - UTERINE CERVICAL SQUAMOUS METAPLASIA [None]
  - UTERINE LEIOMYOMA [None]
